FAERS Safety Report 5689981-6 (Version None)
Quarter: 2008Q2

REPORT INFORMATION
  Report Type: 
  Country: None (occurrence: None)
  Receive Date: 20080401
  Receipt Date: 20070604
  Transmission Date: 20081010
  Serious: No
  Sender: FDA-Public Use
  Company Number: A0654074A

PATIENT
  Age: 42 Year
  Sex: Female

DRUGS (7)
  1. FLOVENT [Suspect]
     Indication: ASTHMA
     Dosage: 2PUFF TWICE PER DAY
     Route: 055
  2. ACCUTANE [Concomitant]
  3. LEXAPRO [Concomitant]
  4. ALLEGRA [Concomitant]
  5. FLONASE [Concomitant]
  6. IRON [Concomitant]
  7. DIFFERIN [Concomitant]

REACTIONS (1)
  - COELIAC DISEASE [None]
